FAERS Safety Report 9995943 (Version 1)
Quarter: 2014Q1

REPORT INFORMATION
  Report Type: Spontaneous
  Country: US (occurrence: US)
  Receive Date: 20140311
  Receipt Date: 20140311
  Transmission Date: 20141002
  Serious: Yes (Other)
  Sender: FDA-Public Use
  Company Number: US-BAYER-2014-032585

PATIENT
  Age: 47 Year
  Sex: Female

DRUGS (1)
  1. ACETYLSALICYLIC ACID (} 100 MG) [Suspect]

REACTIONS (6)
  - Analgesic asthma syndrome [None]
  - Allergic granulomatous angiitis [Recovering/Resolving]
  - Asthma [Recovering/Resolving]
  - Eosinophilia [Recovering/Resolving]
  - Blindness unilateral [Recovering/Resolving]
  - Polyneuropathy [Recovering/Resolving]
